FAERS Safety Report 8069456-X (Version None)
Quarter: 2012Q1

REPORT INFORMATION
  Report Type: 
  Country: None (occurrence: None)
  Receive Date: 20120119
  Receipt Date: 20120112
  Transmission Date: 20120608
  Serious: Yes (Hospitalization, Other)
  Sender: FDA-Public Use
  Company Number: 128672

PATIENT
  Age: 21 Year
  Sex: Female

DRUGS (1)
  1. ACETYLCYSTEINE [Suspect]
     Indication: OVERDOSE
     Dosage: 52.5G IN 500ML SALINE OVER 1 HOUR, THEN 17.5

REACTIONS (10)
  - MEDICATION ERROR [None]
  - HYPOTENSION [None]
  - OVERDOSE [None]
  - NAUSEA [None]
  - VOMITING [None]
  - HAEMATURIA [None]
  - HAEMOLYSIS [None]
  - HAEMOGLOBIN DECREASED [None]
  - AZOTAEMIA [None]
  - HAEMATOCRIT DECREASED [None]
